FAERS Safety Report 6962585-0 (Version None)
Quarter: 2010Q3

REPORT INFORMATION
  Report Type: 
  Country: None (occurrence: None)
  Receive Date: 20100831
  Receipt Date: 20100820
  Transmission Date: 20110219
  Serious: Yes (Hospitalization)
  Sender: FDA-Public Use
  Company Number: 2010US003410

PATIENT
  Age: 57 Year
  Sex: Female
  Weight: 84 kg

DRUGS (9)
  1. PROGRAF [Suspect]
     Indication: TRANSPLANT
     Dosage: 3 MG IN THE AM AND 3 MG IN PM, UID/QD ORAL
     Route: 048
     Dates: start: 20050218
  2. RAPAMUNE [Concomitant]
  3. METOPROLOL SUCCINATE [Concomitant]
  4. LASIX [Concomitant]
  5. ASPIRIN [Concomitant]
  6. IRON (IRON) [Concomitant]
  7. RESTASIS (CICLOSPORIN) [Concomitant]
  8. XALATAN [Concomitant]
  9. PROCRIT [Concomitant]

REACTIONS (1)
  - FOOT FRACTURE [None]
